FAERS Safety Report 20443671 (Version 1)
Quarter: 2022Q1

REPORT INFORMATION
  Report Type: Spontaneous
  Country: US (occurrence: None)
  Receive Date: 20220208
  Receipt Date: 20220208
  Transmission Date: 20220423
  Serious: Yes (Hospitalization)
  Sender: FDA-Public Use
  Company Number: None

PATIENT
  Sex: Male

DRUGS (13)
  1. DEFERASIROX [Suspect]
     Active Substance: DEFERASIROX
     Indication: Iron metabolism disorder
     Dosage: OTHER FREQUENCY : EVERY MORNING ;?
     Route: 048
     Dates: start: 20190509
  2. ASPIRIN [Concomitant]
     Active Substance: ASPIRIN
  3. EXJADE [Concomitant]
     Active Substance: DEFERASIROX
  4. FISH OIL CAP [Concomitant]
  5. FLUTICASONE SPR [Concomitant]
  6. FUROSEMIDE TAB [Concomitant]
  7. KP VITAMIN D [Concomitant]
  8. LUMIGAN SOL [Concomitant]
  9. MAGNESIUM TAB [Concomitant]
  10. MULTIPLE VIT TAB [Concomitant]
  11. OMEPRAZOLE [Concomitant]
     Active Substance: OMEPRAZOLE
  12. RANITIDINE CAP [Concomitant]
  13. VIDAZA INJ [Concomitant]

REACTIONS (1)
  - Hospitalisation [None]
